FAERS Safety Report 8471008-4 (Version None)
Quarter: 2012Q2

REPORT INFORMATION
  Report Type: 
  Country: None (occurrence: None)
  Receive Date: 20120627
  Receipt Date: 20120620
  Transmission Date: 20120825
  Serious: Yes (Hospitalization, Other)
  Sender: FDA-Public Use
  Company Number: CA-ELI_LILLY_AND_COMPANY-CA201206006568

PATIENT
  Age: 68 Year
  Sex: Female

DRUGS (7)
  1. WELLBUTRIN [Concomitant]
  2. FORTEO [Suspect]
     Indication: OSTEOPOROSIS
     Dosage: 20 UG, QD
     Route: 058
     Dates: start: 20110601
  3. MAGNESIUM SULFATE [Concomitant]
  4. CALCIUM [Concomitant]
  5. ADVAIR DISKUS 100/50 [Concomitant]
  6. VENTOLIN [Concomitant]
  7. VITAMIN D [Concomitant]

REACTIONS (3)
  - UPPER LIMB FRACTURE [None]
  - FALL [None]
  - JOINT DISLOCATION [None]
